FAERS Safety Report 19729419 (Version 1)
Quarter: 2021Q3

REPORT INFORMATION
  Report Type: Spontaneous
  Country: US (occurrence: US)
  Receive Date: 20210820
  Receipt Date: 20210820
  Transmission Date: 20211014
  Serious: No
  Sender: FDA-Public Use
  Company Number: US-ELI_LILLY_AND_COMPANY-US202107010293

PATIENT
  Age: 42 Year
  Sex: Female

DRUGS (2)
  1. BASAGLAR [Suspect]
     Active Substance: INSULIN GLARGINE
     Indication: TYPE 2 DIABETES MELLITUS
     Dosage: 44 U, EACH MORNING
     Route: 058
     Dates: start: 202011
  2. BASAGLAR [Suspect]
     Active Substance: INSULIN GLARGINE
     Dosage: 44 U, EACH MORNING
     Route: 058
     Dates: start: 202011

REACTIONS (2)
  - Accidental underdose [Recovered/Resolved]
  - Product dose omission issue [Not Recovered/Not Resolved]

NARRATIVE: CASE EVENT DATE: 20210722
